FAERS Safety Report 25527332 (Version 3)
Quarter: 2025Q4

REPORT INFORMATION
  Report Type: Report from Study
  Country: US (occurrence: US)
  Receive Date: 20250708
  Receipt Date: 20251211
  Transmission Date: 20260118
  Serious: Yes (Other)
  Sender: BIOGEN
  Company Number: US-BIOGEN-2025BI01316145

PATIENT
  Age: 59 Year
  Sex: Female

DRUGS (3)
  1. VUMERITY [Suspect]
     Active Substance: DIROXIMEL FUMARATE
     Indication: Relapsing-remitting multiple sclerosis
     Dosage: DOSAGE TEXT:FOR 7 DAYS
  2. VUMERITY [Suspect]
     Active Substance: DIROXIMEL FUMARATE
  3. VUMERITY [Suspect]
     Active Substance: DIROXIMEL FUMARATE

REACTIONS (4)
  - Gait disturbance [Unknown]
  - Fall [Recovered/Resolved]
  - Fractured coccyx [Unknown]
  - Cervical vertebral fracture [Unknown]

NARRATIVE: CASE EVENT DATE: 20250901
